FAERS Safety Report 5924017-0 (Version None)
Quarter: 2008Q4

REPORT INFORMATION
  Report Type: 
  Country: None (occurrence: None)
  Receive Date: 20081020
  Receipt Date: 20081014
  Transmission Date: 20090506
  Serious: Yes (Hospitalization)
  Sender: FDA-Public Use
  Company Number: PHBS2008NL06026

PATIENT
  Age: 44 Year
  Sex: Male

DRUGS (5)
  1. BASILIXIMAB [Suspect]
     Indication: LUNG TRANSPLANT
  2. PREDNISOLONE [Suspect]
     Indication: LUNG TRANSPLANT
  3. TACROLIMUS [Suspect]
     Indication: LUNG TRANSPLANT
  4. AZATHIOPRINE [Suspect]
     Indication: LUNG TRANSPLANT
  5. MYCOPHENOLATE MOFETIL [Suspect]
     Indication: LUNG TRANSPLANT

REACTIONS (8)
  - LYMPHADENOPATHY [None]
  - MUSCULAR WEAKNESS [None]
  - MUSCULOSKELETAL PAIN [None]
  - PARESIS [None]
  - SENSORY DISTURBANCE [None]
  - SPINAL CORD COMPRESSION [None]
  - SPINAL LAMINECTOMY [None]
  - SURGERY [None]
